FAERS Safety Report 4811437-0 (Version None)
Quarter: 2005Q4

REPORT INFORMATION
  Report Type: 
  Country: None (occurrence: None)
  Receive Date: 20051027
  Receipt Date: 20051019
  Transmission Date: 20060501
  Serious: Yes (Death, Hospitalization)
  Sender: FDA-Public Use
  Company Number: PHBS2005JP15396

PATIENT
  Age: 56 Year
  Sex: Male

DRUGS (6)
  1. SANDIMMUNE [Suspect]
     Indication: COLITIS ULCERATIVE
     Dosage: 4 MG/KG/DAY
  2. MESALAMINE [Concomitant]
     Dosage: 2250 MG/DAY
  3. BETAMETHASONE [Concomitant]
  4. PREDNISOLONE [Concomitant]
     Dosage: 60 MG/D
     Route: 048
  5. PREDNISOLONE [Concomitant]
     Dosage: 80 MG/D
     Route: 042
  6. METHYLPREDNISOLONE [Suspect]
     Dosage: 1000 MG/D
     Route: 042

REACTIONS (10)
  - CHEST X-RAY ABNORMAL [None]
  - COLECTOMY TOTAL [None]
  - COLITIS ULCERATIVE [None]
  - COMPUTERISED TOMOGRAM THORAX ABNORMAL [None]
  - DRUG INEFFECTIVE [None]
  - DYSPNOEA [None]
  - OPPORTUNISTIC INFECTION [None]
  - PNEUMOCYSTIS JIROVECI PNEUMONIA [None]
  - POST PROCEDURAL COMPLICATION [None]
  - PYREXIA [None]
